FAERS Safety Report 10223694 (Version 1)
Quarter: 2014Q2

REPORT INFORMATION
  Report Type: Spontaneous
  Country: GB (occurrence: GB)
  Receive Date: 20140609
  Receipt Date: 20140609
  Transmission Date: 20141212
  Serious: Yes (Other)
  Sender: FDA-Public Use
  Company Number: GB-ACCORD-024112

PATIENT
  Age: 92 Year
  Sex: Female
  Weight: 66.05 kg

DRUGS (8)
  1. FUROSEMIDE [Concomitant]
  2. TRAMADOL/TRAMADOL HYDROCHLORIDE [Suspect]
     Indication: ANALGESIC THERAPY
     Dosage: START PERIOD FROM 50 MG DOSE: 4 DAYS
     Route: 048
     Dates: start: 20140517, end: 20140523
  3. RAMIPRIL [Concomitant]
  4. MACROGOL/MACROGOL STEARATE [Concomitant]
  5. PARACETAMOL [Concomitant]
  6. SENNA ALEXANDRINA [Concomitant]
  7. ENOXAPARIN [Concomitant]
     Indication: PROPHYLAXIS
     Dates: start: 20140410, end: 20140520
  8. ALENDRONATE SODIUM/ALENDRONIC ACID [Concomitant]

REACTIONS (1)
  - Platelet count decreased [Not Recovered/Not Resolved]
